FAERS Safety Report 9125082 (Version 1)
Quarter: 2013Q1

REPORT INFORMATION
  Report Type: Spontaneous
  Country: DK (occurrence: DK)
  Receive Date: 20130227
  Receipt Date: 20130227
  Transmission Date: 20140127
  Serious: Yes (Hospitalization)
  Sender: FDA-Public Use
  Company Number: DK-JNJFOC-20130211141

PATIENT
  Sex: Female

DRUGS (6)
  1. XARELTO [Suspect]
     Indication: THROMBOSIS PROPHYLAXIS
     Route: 048
     Dates: start: 201209, end: 20130212
  2. XARELTO [Suspect]
     Indication: DEEP VEIN THROMBOSIS
     Route: 048
     Dates: start: 201209, end: 20130212
  3. NITROFURANTOIN [Concomitant]
     Indication: PROPHYLAXIS URINARY TRACT INFECTION
     Route: 065
     Dates: start: 20121104
  4. ANCOZAN [Concomitant]
     Indication: HYPERTENSION
     Route: 065
     Dates: start: 20121108
  5. FURIX [Concomitant]
     Indication: HYPERTENSION
     Route: 065
     Dates: start: 20121104
  6. SAROTEN [Concomitant]
     Indication: DEPRESSION
     Route: 065
     Dates: start: 20121104

REACTIONS (3)
  - Haemorrhage [Recovering/Resolving]
  - Dizziness [Unknown]
  - Fatigue [Unknown]
